FAERS Safety Report 9375021 (Version 2)
Quarter: 2013Q4

REPORT INFORMATION
  Report Type: Spontaneous
  Country: US (occurrence: US)
  Receive Date: 20130628
  Receipt Date: 20131129
  Transmission Date: 20140711
  Serious: No
  Sender: FDA-Public Use
  Company Number: US-009507513-1306USA011047

PATIENT
  Age: 79 Year
  Sex: Male
  Weight: 76.19 kg

DRUGS (2)
  1. ZETIA [Suspect]
     Indication: HYPERLIPIDAEMIA
     Dosage: UNK
     Route: 048
  2. VIAGRA [Concomitant]
     Dosage: 100 MG, QD, PRN
     Route: 048

REACTIONS (4)
  - Headache [Recovered/Resolved]
  - Drug hypersensitivity [Unknown]
  - Muscle spasms [Unknown]
  - Drug hypersensitivity [Unknown]
